FAERS Safety Report 25154257 (Version 1)
Quarter: 2025Q2

REPORT INFORMATION
  Report Type: Spontaneous
  Country: CN (occurrence: CN)
  Receive Date: 20250403
  Receipt Date: 20250403
  Transmission Date: 20250716
  Serious: Yes (Death, Other)
  Sender: ROCHE
  Company Number: CN-ROCHE-10000246638

PATIENT
  Sex: Male

DRUGS (1)
  1. AVASTIN [Suspect]
     Active Substance: BEVACIZUMAB
     Indication: Gastric cancer
     Route: 065

REACTIONS (6)
  - Off label use [Unknown]
  - Asthenia [Unknown]
  - Haemorrhage [Unknown]
  - Hyperpyrexia [Unknown]
  - Depressed level of consciousness [Unknown]
  - Death [Fatal]
